FAERS Safety Report 8378778-4 (Version None)
Quarter: 2012Q2

REPORT INFORMATION
  Report Type: 
  Country: None (occurrence: None)
  Receive Date: 20120523
  Receipt Date: 20120517
  Transmission Date: 20120825
  Serious: No
  Sender: FDA-Public Use
  Company Number: US-ASTRAZENECA-2008UW21274

PATIENT
  Age: 53 Year
  Sex: Male

DRUGS (2)
  1. LITHIUM CARBONATE [Concomitant]
     Dates: start: 20080514
  2. SEROQUEL [Suspect]
     Route: 048
     Dates: start: 20080514

REACTIONS (2)
  - ILL-DEFINED DISORDER [None]
  - BIPOLAR DISORDER [None]
